FAERS Safety Report 24526393 (Version 4)
Quarter: 2024Q4

REPORT INFORMATION
  Report Type: Report from Study
  Country: US (occurrence: US)
  Receive Date: 20241021
  Receipt Date: 20241126
  Transmission Date: 20250114
  Serious: Yes (Other)
  Sender: ACADIA PHARMACEUTICALS
  Company Number: US-ACADIA PHARMACEUTICALS INC.-ACA-2024-PIM-006373

PATIENT
  Sex: Female

DRUGS (2)
  1. NUPLAZID [Suspect]
     Active Substance: PIMAVANSERIN TARTRATE
     Indication: Parkinson^s disease psychosis
     Dosage: 34 MILLIGRAM, QD
     Route: 048
  2. NUPLAZID [Suspect]
     Active Substance: PIMAVANSERIN TARTRATE
     Dosage: 34 MILLIGRAM, QD
     Route: 048

REACTIONS (12)
  - Deafness [Unknown]
  - Hallucination [Unknown]
  - Hallucination, visual [Unknown]
  - Tremor [Unknown]
  - Head injury [Unknown]
  - Mobility decreased [Unknown]
  - Suture insertion [Unknown]
  - Screaming [Unknown]
  - Fear [Unknown]
  - Therapy interrupted [Recovered/Resolved]
  - Fall [Unknown]
  - Drug ineffective [Unknown]
